FAERS Safety Report 25709784 (Version 1)
Quarter: 2025Q3

REPORT INFORMATION
  Report Type: Spontaneous
  Country: US (occurrence: None)
  Receive Date: 20250820
  Receipt Date: 20250820
  Transmission Date: 20251020
  Serious: No
  Sender: FDA-CTU
  Company Number: None

PATIENT
  Age: 78 Year
  Sex: Female

DRUGS (2)
  1. DEVICE [Suspect]
     Active Substance: DEVICE
     Indication: Senile osteoporosis
     Dosage: USE 1 PEN NEEDLE WITH EACH DAILY DOSE OF FORTEO AS DIRECTED?
     Route: 048
     Dates: start: 202409
  2. FORTEO [Suspect]
     Active Substance: TERIPARATIDE
     Indication: Senile osteoporosis
     Dosage: INJECT 20MCG SUBCUTANEOUSLY DAILY AS DIRECTED
     Route: 058
     Dates: start: 202409

REACTIONS (2)
  - Hernia repair [None]
  - Abdominal operation [None]
